FAERS Safety Report 6744760-3 (Version None)
Quarter: 2010Q2

REPORT INFORMATION
  Report Type: 
  Country: None (occurrence: None)
  Receive Date: 20100527
  Receipt Date: 20100524
  Transmission Date: 20101027
  Serious: Yes (Hospitalization)
  Sender: FDA-Public Use
  Company Number: JP-EISAI INC.-E2020-06348-SPO-JP

PATIENT
  Sex: Male

DRUGS (6)
  1. ARICEPT [Suspect]
     Indication: DEMENTIA ALZHEIMER'S TYPE
     Dosage: UNKNOWN
     Route: 048
     Dates: start: 20090501, end: 20091001
  2. ARICEPT [Suspect]
     Route: 048
     Dates: start: 20091001, end: 20100314
  3. YOKU-KAN-SAN [Suspect]
     Indication: PSYCHIATRIC SYMPTOM
     Dosage: UNKNOWN
     Route: 048
     Dates: start: 20090601, end: 20090901
  4. YOKU-KAN-SAN [Suspect]
     Route: 048
     Dates: start: 20091001, end: 20100314
  5. MAGLAX [Concomitant]
     Indication: CONSTIPATION
     Route: 048
     Dates: end: 20100314
  6. ASPIRIN [Concomitant]
     Indication: THROMBOSIS PROPHYLAXIS
     Route: 048
     Dates: end: 20100314

REACTIONS (1)
  - INTERSTITIAL LUNG DISEASE [None]
